FAERS Safety Report 6672137-8 (Version None)
Quarter: 2010Q2

REPORT INFORMATION
  Report Type: 
  Country: None (occurrence: None)
  Receive Date: 20100407
  Receipt Date: 20100407
  Transmission Date: 20101027
  Serious: Yes (Other)
  Sender: FDA-Public Use
  Company Number: None

PATIENT
  Sex: Female

DRUGS (1)
  1. FORTEO [Suspect]
     Indication: OSTEOPOROSIS
     Dosage: 20 MCG DAILY SQ
     Route: 058
     Dates: start: 20090313, end: 20100406

REACTIONS (5)
  - DRY SKIN [None]
  - NAIL BED BLEEDING [None]
  - ONYCHOCLASIS [None]
  - SKIN ATROPHY [None]
  - SKIN WRINKLING [None]
